FAERS Safety Report 4554096-7 (Version None)
Quarter: 2005Q1

REPORT INFORMATION
  Report Type: 
  Country: None (occurrence: None)
  Receive Date: 20050113
  Receipt Date: 20050113
  Transmission Date: 20050727
  Serious: No
  Sender: FDA-Public Use
  Company Number: None

PATIENT
  Age: 71 Year
  Sex: Female
  Weight: 72.57 kg

DRUGS (6)
  1. METRONIDAZOLE [Suspect]
     Indication: CLOSTRIDIAL INFECTION
     Dosage: 500 MG   TID   ORAL
     Route: 048
     Dates: start: 20041227, end: 20050106
  2. FUROSEMIDE [Concomitant]
  3. LEVOTHYROXINE [Concomitant]
  4. POTASSIUM CHLORIDE [Concomitant]
  5. MIRALAX [Concomitant]
  6. PERCOCET-5 [Concomitant]

REACTIONS (3)
  - JOINT SWELLING [None]
  - OEDEMA PERIPHERAL [None]
  - PAIN IN EXTREMITY [None]
